FAERS Safety Report 21665319 (Version 1)
Quarter: 2022Q4

REPORT INFORMATION
  Report Type: Report from Study
  Country: CA (occurrence: CA)
  Receive Date: 20221201
  Receipt Date: 20221201
  Transmission Date: 20230112
  Serious: Yes (Other)
  Sender: FDA-Public Use
  Company Number: CA-TAKEDA-2021TUS009131

PATIENT
  Age: 71 Year
  Sex: Female
  Weight: 101 kg

DRUGS (12)
  1. HUMAN IMMUNOGLOBULIN G [Suspect]
     Active Substance: HUMAN IMMUNOGLOBULIN G
     Indication: Primary immunodeficiency syndrome
     Dosage: 16 GRAM, 1/WEEK
     Route: 058
     Dates: start: 20200803
  2. METFORMIN [Concomitant]
     Active Substance: METFORMIN HYDROCHLORIDE
  3. VITAMIN B12 [Concomitant]
     Active Substance: CYANOCOBALAMIN
  4. CALCIUM [Concomitant]
     Active Substance: CALCIUM
  5. SYNTHROID [Concomitant]
     Active Substance: LEVOTHYROXINE SODIUM
  6. CRESTOR [Concomitant]
     Active Substance: ROSUVASTATIN CALCIUM
  7. BISOPROLOL [Concomitant]
     Active Substance: BISOPROLOL
  8. RABEPRAZOLE SODIUM [Concomitant]
     Active Substance: RABEPRAZOLE SODIUM
  9. SYMBICORT [Concomitant]
     Active Substance: BUDESONIDE\FORMOTEROL FUMARATE DIHYDRATE
  10. MAGNESIUM [Concomitant]
     Active Substance: MAGNESIUM
  11. OZEMPIC [Concomitant]
     Active Substance: SEMAGLUTIDE
  12. APIDRA [Concomitant]
     Active Substance: INSULIN GLULISINE

REACTIONS (4)
  - Bronchiectasis [Recovering/Resolving]
  - Therapeutic response decreased [Unknown]
  - Anxiety [Unknown]
  - Injection site pruritus [Unknown]
